FAERS Safety Report 8517807-1 (Version None)
Quarter: 2012Q3

REPORT INFORMATION
  Report Type: 
  Country: None (occurrence: None)
  Receive Date: 20120718
  Receipt Date: 20120705
  Transmission Date: 20120928
  Serious: No
  Sender: FDA-Public Use
  Company Number: US-ASTRAZENECA-2012SE34151

PATIENT
  Age: 48 Year
  Sex: Male
  Weight: 90.7 kg

DRUGS (2)
  1. VIMOVO [Suspect]
     Indication: ARTHRALGIA
     Route: 048
  2. VIMOVO [Suspect]
     Indication: TENDONITIS
     Route: 048

REACTIONS (2)
  - OFF LABEL USE [None]
  - HICCUPS [None]
